FAERS Safety Report 7574466-2 (Version None)
Quarter: 2011Q2

REPORT INFORMATION
  Report Type: 
  Country: None (occurrence: None)
  Receive Date: 20110627
  Receipt Date: 20110509
  Transmission Date: 20111010
  Serious: No
  Sender: FDA-Public Use
  Company Number: US-BAYER-2011-041490

PATIENT
  Age: 67 Year
  Sex: Male
  Weight: 118 kg

DRUGS (5)
  1. VITAMIN D [Concomitant]
  2. ADVAIR DISKUS 100/50 [Concomitant]
  3. NIASPAN [Concomitant]
  4. METOPROLOL TARTRATE [Concomitant]
  5. ALEVE (CAPLET) [Suspect]
     Indication: BACK PAIN
     Dosage: 4 DF, ONCE
     Dates: start: 20110508, end: 20110508

REACTIONS (1)
  - NO ADVERSE EVENT [None]
